FAERS Safety Report 8412122 (Version 7)
Quarter: 2012Q4

REPORT INFORMATION
  Report Type: 
  Country: US (occurrence: US)
  Receive Date: 20120217
  Receipt Date: 20120907
  Transmission Date: 20130627
  Serious: Yes (Life-Threatening, Hospitalization, Other)
  Sender: FDA-Public Use
  Company Number: US-PURDUE-USA-2012-0082158

PATIENT
  Age: 50 Year
  Sex: Male
  Weight: 81 kg

DRUGS (20)
  1. OXYCONTIN TABLETS [Suspect]
     Indication: BACK PAIN
     Dosage: 40 mg, q6h
     Route: 048
  2. OXYCONTIN TABLETS [Suspect]
     Indication: INTERVERTEBRAL DISC DEGENERATION
     Dosage: see text
  3. OXYCODONE HYDROCHLORIDE (SIMILAR TO NDA 20-553) [Suspect]
     Indication: INTERVERTEBRAL DISC DEGENERATION
     Dosage: 30 mg, see text
     Route: 048
  4. ROXICODONE [Suspect]
     Indication: INTERVERTEBRAL DISC DEGENERATION
     Dosage: UNK UNK, see text
  5. SOMA [Suspect]
     Indication: INTERVERTEBRAL DISC DEGENERATION
  6. ALCOHOL [Suspect]
     Indication: PRODUCT USED FOR UNKNOWN INDICATION
  7. DEPAKOTE ER [Concomitant]
     Indication: MOOD SWINGS
     Dosage: 250 mg, bid
     Route: 048
  8. LEXAPRO [Concomitant]
     Indication: DEPRESSION
     Dosage: 20 mg, qd prn
     Route: 048
  9. LEXAPRO [Concomitant]
     Dosage: UNK
  10. REQUIP [Concomitant]
     Indication: PRODUCT USED FOR UNKNOWN INDICATION
     Dosage: 2 mg, UNK
  11. LYRICA [Concomitant]
     Indication: PRODUCT USED FOR UNKNOWN INDICATION
     Dosage: 50 mg, daily
  12. PROZAC [Concomitant]
     Indication: PRODUCT USED FOR UNKNOWN INDICATION
  13. KLONOPIN [Concomitant]
     Indication: PRODUCT USED FOR UNKNOWN INDICATION
  14. RIVOTRIL [Concomitant]
     Indication: PRODUCT USED FOR UNKNOWN INDICATION
  15. TRAZODONE [Concomitant]
     Indication: PRODUCT USED FOR UNKNOWN INDICATION
     Dosage: 150 mg, UNK
  16. DILANTIN                           /00017401/ [Concomitant]
     Indication: PRODUCT USED FOR UNKNOWN INDICATION
     Dosage: 100 mg, UNK
  17. MIRTAZAPINE [Concomitant]
     Indication: PRODUCT USED FOR UNKNOWN INDICATION
  18. ULTRAM [Concomitant]
     Indication: PRODUCT USED FOR UNKNOWN INDICATION
  19. CARISOPRODOL [Concomitant]
     Indication: PRODUCT USED FOR UNKNOWN INDICATION
  20. ZANAFLEX [Concomitant]
     Indication: PRODUCT USED FOR UNKNOWN INDICATION
     Dosage: 3 mg, UNK

REACTIONS (53)
  - Intentional overdose [Unknown]
  - Substance abuse [Unknown]
  - Drug dependence [Unknown]
  - Drug withdrawal syndrome [Recovered/Resolved]
  - Neck surgery [Unknown]
  - Spinal fusion surgery [Unknown]
  - Cervicobrachial syndrome [Unknown]
  - Lumbar radiculopathy [Unknown]
  - Self injurious behaviour [Unknown]
  - Weight decreased [Unknown]
  - Major depression [Unknown]
  - Paranoia [Unknown]
  - Hallucination, auditory [Unknown]
  - Intervertebral disc protrusion [Unknown]
  - Road traffic accident [Unknown]
  - Arterial occlusive disease [Unknown]
  - Vascular insufficiency [Unknown]
  - Cellulitis [Unknown]
  - Lumbar spinal stenosis [Unknown]
  - Terminal insomnia [Unknown]
  - Aggression [Unknown]
  - Eye irritation [Unknown]
  - Pain [Unknown]
  - Neck pain [Unknown]
  - Pain in extremity [Unknown]
  - Musculoskeletal pain [Unknown]
  - Fatigue [Unknown]
  - Tremor [Unknown]
  - Cold sweat [Unknown]
  - Unevaluable event [Unknown]
  - Inadequate analgesia [Unknown]
  - Memory impairment [Unknown]
  - Nausea [Unknown]
  - Dizziness [Unknown]
  - Malaise [Unknown]
  - Drug tolerance [Unknown]
  - Back pain [Unknown]
  - Restless legs syndrome [Unknown]
  - Dyspepsia [Unknown]
  - Heart rate increased [Unknown]
  - Cardiac disorder [Unknown]
  - Hypoaesthesia [Unknown]
  - Muscle spasms [Unknown]
  - Fibromyalgia [Unknown]
  - Rash [Unknown]
  - Night sweats [Unknown]
  - Headache [Unknown]
  - Asthenia [Unknown]
  - Swelling [Unknown]
  - Gait disturbance [Unknown]
  - Sciatica [Unknown]
  - Sensory loss [Unknown]
  - Haemorrhage [Unknown]
